FAERS Safety Report 4374782-1 (Version None)
Quarter: 2004Q2

REPORT INFORMATION
  Report Type: 
  Country: None (occurrence: None)
  Receive Date: 20040609
  Receipt Date: 20040528
  Transmission Date: 20050107
  Serious: Yes (Life-Threatening, Hospitalization, Other)
  Sender: FDA-Public Use
  Company Number: ES-BRISTOL-MYERS SQUIBB COMPANY-12599650

PATIENT
  Age: 65 Year
  Sex: Male

DRUGS (5)
  1. ATAZANAVIR [Suspect]
     Indication: HIV INFECTION
     Dosage: WITH-HELD ON 29-APR-2004, RE-STARTED 03-MAY-2004
     Route: 048
     Dates: start: 20040227
  2. STAVUDINE [Concomitant]
     Indication: HIV INFECTION
     Dosage: WITH-HELD ON 29-APR-2004, RE-STARTED 03-MAY-2004
     Dates: start: 20040227
  3. RITONAVIR [Concomitant]
     Indication: HIV INFECTION
     Dosage: WITH-HELD ON 29-APR-2004, RE-STARTED 03-MAY-2004
     Dates: start: 20040227
  4. LAMIVUDINE [Concomitant]
     Indication: HIV INFECTION
     Dosage: WITH-HELD ON 29-APR-2004, RE-STARTED 03-MAY-2004
     Dates: start: 20040227
  5. TENOFOVIR [Concomitant]
     Indication: HIV INFECTION
     Dosage: WITH-HELD ON 29-APR-2004, RE-STARTED 03-MAY-2004
     Dates: start: 20040227

REACTIONS (2)
  - URETERIC RUPTURE [None]
  - URINARY TRACT OBSTRUCTION [None]
